FAERS Safety Report 22021330 (Version 2)
Quarter: 2023Q2

REPORT INFORMATION
  Report Type: Spontaneous
  Country: JP (occurrence: JP)
  Receive Date: 20230222
  Receipt Date: 20230615
  Transmission Date: 20230722
  Serious: Yes (Death, Other)
  Sender: FDA-Public Use
  Company Number: JP-BAYER-2023A021593

PATIENT
  Age: 89 Year
  Sex: Female

DRUGS (16)
  1. GADOBUTROL [Suspect]
     Active Substance: GADOBUTROL
     Indication: Lung cancer metastatic
     Dosage: UNK UNK, ONCE
     Route: 042
     Dates: start: 20230220, end: 20230220
  2. GADOBUTROL [Suspect]
     Active Substance: GADOBUTROL
     Indication: Metastases to central nervous system
  3. GADOBUTROL [Suspect]
     Active Substance: GADOBUTROL
     Indication: Magnetic resonance imaging
  4. FDG SCAN [Concomitant]
     Dosage: UNK
     Route: 042
     Dates: start: 20230220, end: 20230220
  5. VONOPRAZAN FUMARATE [Concomitant]
     Active Substance: VONOPRAZAN FUMARATE
     Route: 048
  6. AMLODIPINE [Concomitant]
     Active Substance: AMLODIPINE BESYLATE
     Route: 048
  7. TELMISARTAN [Concomitant]
     Active Substance: TELMISARTAN
     Route: 048
  8. CYMBALTA [Concomitant]
     Active Substance: DULOXETINE HYDROCHLORIDE
     Route: 048
  9. MIRABEGRON [Concomitant]
     Active Substance: MIRABEGRON
     Route: 048
  10. ZOPICLONE [Concomitant]
     Active Substance: ZOPICLONE
     Route: 048
  11. CALONAL [Concomitant]
     Active Substance: ACETAMINOPHEN
     Route: 048
  12. PREGABALIN [Concomitant]
     Active Substance: PREGABALIN
     Route: 048
  13. SULFASALAZINE [Concomitant]
     Active Substance: SULFASALAZINE
     Route: 048
  14. MAGNESIUM OXIDE [Concomitant]
     Active Substance: MAGNESIUM OXIDE
     Route: 048
  15. BONALON [Concomitant]
     Active Substance: ALENDRONATE SODIUM
     Route: 048
  16. COVID-19 VACCINE [Concomitant]
     Dosage: UNK, ONCE
     Route: 030
     Dates: start: 202301, end: 202301

REACTIONS (6)
  - Non-cardiogenic pulmonary oedema [Fatal]
  - Altered state of consciousness [None]
  - Hypotension [None]
  - Feeling abnormal [None]
  - Wheezing [None]
  - Oxygen saturation immeasurable [None]

NARRATIVE: CASE EVENT DATE: 20230220
